FAERS Safety Report 8457782-1 (Version None)
Quarter: 2012Q2

REPORT INFORMATION
  Report Type: 
  Country: None (occurrence: None)
  Receive Date: 20120323
  Receipt Date: 20110809
  Transmission Date: 20120825
  Serious: Yes (Other)
  Sender: FDA-Public Use
  Company Number: 163-21880-11081442

PATIENT
  Sex: Male

DRUGS (3)
  1. REVLIMID [Suspect]
     Indication: MULTIPLE MYELOMA
     Dosage: 10 MG, 1 IN 1 D, PO; 10 MG, 1 IN1 D, PO; 15 MG, DAILY FOR 21 DAYS, PO
     Route: 048
     Dates: start: 20090101, end: 20100125
  2. REVLIMID [Suspect]
     Indication: MULTIPLE MYELOMA
     Dosage: 10 MG, 1 IN 1 D, PO; 10 MG, 1 IN1 D, PO; 15 MG, DAILY FOR 21 DAYS, PO
     Route: 048
     Dates: start: 20110713
  3. REVLIMID [Suspect]
     Indication: MULTIPLE MYELOMA
     Dosage: 10 MG, 1 IN 1 D, PO; 10 MG, 1 IN1 D, PO; 15 MG, DAILY FOR 21 DAYS, PO
     Route: 048
     Dates: start: 20110215, end: 20110630

REACTIONS (1)
  - THROMBOSIS [None]
